FAERS Safety Report 15850290 (Version 1)
Quarter: 2019Q1

REPORT INFORMATION
  Report Type: Spontaneous
  Country: US (occurrence: US)
  Receive Date: 20190121
  Receipt Date: 20190121
  Transmission Date: 20190417
  Serious: No
  Sender: FDA-Public Use
  Company Number: US-PFIZER INC-2019017344

PATIENT
  Sex: Female

DRUGS (1)
  1. JUNIOR STRENGTH ADVIL [Suspect]
     Active Substance: IBUPROFEN
     Dosage: UNK

REACTIONS (3)
  - Intentional product misuse [Unknown]
  - Palpitations [Unknown]
  - Reaction to excipient [Unknown]
